FAERS Safety Report 14146022 (Version 1)
Quarter: 2017Q4

REPORT INFORMATION
  Report Type: Spontaneous
  Country: US (occurrence: US)
  Receive Date: 20171031
  Receipt Date: 20171031
  Transmission Date: 20180321
  Serious: Yes (Other)
  Sender: FDA-Public Use
  Company Number: US-PACIRA PHARMACEUTICALS, INC.-2017EXPUS00548

PATIENT
  Age: 45 Year
  Sex: Female

DRUGS (1)
  1. EXPAREL [Suspect]
     Active Substance: BUPIVACAINE
     Indication: POSTOPERATIVE ANALGESIA
     Dosage: 266 MG, SINGLE
     Route: 050
     Dates: start: 20170914, end: 20170914

REACTIONS (1)
  - Haematoma evacuation [Unknown]

NARRATIVE: CASE EVENT DATE: 20170915
